FAERS Safety Report 7344928-1 (Version None)
Quarter: 2011Q1

REPORT INFORMATION
  Report Type: 
  Country: None (occurrence: None)
  Receive Date: 20110310
  Receipt Date: 20110307
  Transmission Date: 20110831
  Serious: Yes (Hospitalization, Other)
  Sender: FDA-Public Use
  Company Number: CO-PFIZER INC-CO-WYE-H17780510

PATIENT
  Age: 16 Year
  Sex: Male

DRUGS (6)
  1. ENALAPRIL [Concomitant]
     Indication: HYPERTENSION
     Dosage: 5 MG, UNK
     Route: 065
     Dates: start: 19960101, end: 20091201
  2. TOLTERODINE TARTRATE [Suspect]
     Indication: URINARY TRACT DISORDER
  3. TOLTERODINE TARTRATE [Suspect]
     Indication: URINARY TRACT INFECTION
     Dosage: 2.0 MG, 2X/DAY
     Route: 065
     Dates: start: 20091001, end: 20091201
  4. RAPAMUNE [Suspect]
     Indication: PROPHYLAXIS AGAINST TRANSPLANT REJECTION
     Dosage: 3.0 MG, 1X/DAY
     Route: 065
     Dates: start: 20090101
  5. NIFEDIPINE [Concomitant]
     Indication: HYPERTENSION
     Dosage: 30 MG, 1X/DAY
     Route: 065
     Dates: start: 19960101, end: 20091201
  6. PREDNISOLONE [Concomitant]
     Indication: RENAL TRANSPLANT
     Dosage: UNK
     Dates: start: 19960101, end: 20091201

REACTIONS (2)
  - PNEUMONIA [None]
  - RENAL FAILURE [None]
